FAERS Safety Report 18624047 (Version 3)
Quarter: 2021Q1

REPORT INFORMATION
  Report Type: Spontaneous
  Country: US (occurrence: US)
  Receive Date: 20201216
  Receipt Date: 20210108
  Transmission Date: 20210419
  Serious: No
  Sender: FDA-Public Use
  Company Number: US-SA-2020SA357410

PATIENT

DRUGS (1)
  1. LANTUS SOLOSTAR [Suspect]
     Active Substance: INSULIN GLARGINE
     Indication: DIABETES MELLITUS
     Dosage: 40 IU, QD
     Route: 065
     Dates: start: 2020

REACTIONS (3)
  - Product quality issue [Unknown]
  - Injection site irritation [Unknown]
  - Application site pruritus [Unknown]

NARRATIVE: CASE EVENT DATE: 20201211
